FAERS Safety Report 4563224-9 (Version None)
Quarter: 2005Q1

REPORT INFORMATION
  Report Type: 
  Country: None (occurrence: None)
  Receive Date: 20050128
  Receipt Date: 20050118
  Transmission Date: 20050727
  Serious: Yes (Other)
  Sender: FDA-Public Use
  Company Number: US-JNJFOC-20050105373

PATIENT
  Sex: Female
  Weight: 72.58 kg

DRUGS (5)
  1. REMICADE [Suspect]
     Indication: RHEUMATOID ARTHRITIS
     Route: 042
  2. ENBREL [Concomitant]
     Indication: RHEUMATOID ARTHRITIS
  3. METHOTREXATE [Concomitant]
     Indication: RHEUMATOID ARTHRITIS
  4. ARAVA [Concomitant]
     Indication: RHEUMATOID ARTHRITIS
  5. VIOXX [Concomitant]
     Indication: RHEUMATOID ARTHRITIS

REACTIONS (6)
  - ATRIAL FIBRILLATION [None]
  - MULTIPLE ALLERGIES [None]
  - PHARYNGOLARYNGEAL PAIN [None]
  - PNEUMONIA [None]
  - SINUSITIS [None]
  - URTICARIA [None]
